FAERS Safety Report 9899903 (Version 1)
Quarter: 2014Q1

REPORT INFORMATION
  Report Type: Not Available
  Country: US (occurrence: US)
  Receive Date: 20140214
  Receipt Date: 20140214
  Transmission Date: 20141002
  Serious: No
  Sender: FDA-Public Use
  Company Number: US-VIVUS-2013V1000789

PATIENT
  Sex: Male
  Weight: 106.24 kg

DRUGS (11)
  1. QSYMIA 3.75MG/23MG [Suspect]
     Indication: PRODUCT USED FOR UNKNOWN INDICATION
     Route: 048
     Dates: start: 201211
  2. QSYMIA 7.5MG/46MG [Suspect]
     Indication: PRODUCT USED FOR UNKNOWN INDICATION
     Route: 048
  3. QSYMIA 11.25MG/69MG [Suspect]
     Indication: PRODUCT USED FOR UNKNOWN INDICATION
     Route: 048
  4. QSYMIA 15MG/92MG [Suspect]
     Indication: PRODUCT USED FOR UNKNOWN INDICATION
     Route: 048
  5. HUMOLOG INSULIN PUMP [Concomitant]
     Indication: TYPE 1 DIABETES MELLITUS
     Dosage: 30 UNITS/SQ
     Route: 058
     Dates: start: 2008
  6. SYMLIN INSULIN [Concomitant]
     Indication: TYPE 1 DIABETES MELLITUS
     Dosage: NOT USING REGULARLY
     Route: 058
  7. NORVASC [Concomitant]
     Indication: HYPERTENSION
     Route: 048
     Dates: start: 2010
  8. COREG [Concomitant]
     Indication: HYPERTENSION
     Route: 048
     Dates: start: 2010
  9. CRESTOR [Concomitant]
     Indication: PROPHYLAXIS
     Route: 048
     Dates: start: 2010
  10. TESTOSTERONE [Concomitant]
     Indication: WEIGHT DECREASED
     Dates: start: 2011
  11. LOVAZA [Concomitant]
     Indication: PROPHYLAXIS
     Route: 048
     Dates: start: 2010

REACTIONS (3)
  - Urine abnormality [Recovered/Resolved]
  - Urine analysis abnormal [Recovered/Resolved]
  - Heart rate increased [Recovered/Resolved]
